FAERS Safety Report 9109462 (Version 1)
Quarter: 2013Q1

REPORT INFORMATION
  Report Type: Spontaneous
  Country: US (occurrence: US)
  Receive Date: 20130222
  Receipt Date: 20130222
  Transmission Date: 20140127
  Serious: No
  Sender: FDA-Public Use
  Company Number: US-BAYER-2013-021566

PATIENT
  Age: 92 Year
  Sex: Male
  Weight: 88 kg

DRUGS (7)
  1. ALEVE CAPLET/TABLET,MIDOL EXTENDED RELIEF CAPLET [Suspect]
     Dosage: 1-2 DF, QD
     Route: 048
     Dates: start: 2012
  2. LEVOTHYROXINE [Concomitant]
  3. LISINOPRIL [Concomitant]
  4. LEVSIN [Concomitant]
  5. METFORMIN [Concomitant]
  6. PROSTATE MEDICATION [Concomitant]
  7. TAMSULOSIN [Concomitant]

REACTIONS (2)
  - Blood pressure increased [Unknown]
  - Incorrect drug administration duration [None]
